FAERS Safety Report 14813550 (Version 2)
Quarter: 2019Q1

REPORT INFORMATION
  Report Type: Spontaneous
  Country: FR (occurrence: FR)
  Receive Date: 20180426
  Receipt Date: 20190117
  Transmission Date: 20190417
  Serious: Yes (Hospitalization)
  Sender: FDA-Public Use
  Company Number: FR-BRISTOL-MYERS SQUIBB COMPANY-BMS-2018-036074

PATIENT
  Age: 95 Year
  Sex: Female
  Weight: 64.8 kg

DRUGS (2)
  1. ESCITALOPRAM ARROW [Interacting]
     Active Substance: ESCITALOPRAM OXALATE
     Indication: ANXIETY
     Dosage: 10 MG/DAY
     Route: 048
     Dates: start: 20180212, end: 20180308
  2. ELIQUIS [Suspect]
     Active Substance: APIXABAN
     Indication: PULMONARY EMBOLISM
     Dosage: 10 MG/DAY
     Route: 048
     Dates: start: 20180212, end: 20180228

REACTIONS (2)
  - Haematoma [Recovered/Resolved]
  - Drug interaction [Recovered/Resolved]

NARRATIVE: CASE EVENT DATE: 20180228
